FAERS Safety Report 6340182-8 (Version None)
Quarter: 2009Q3

REPORT INFORMATION
  Report Type: 
  Country: None (occurrence: None)
  Receive Date: 20090903
  Receipt Date: 20090828
  Transmission Date: 20100115
  Serious: Yes (Hospitalization)
  Sender: FDA-Public Use
  Company Number: US-ABBOTT-09P-163-0594656-00

PATIENT
  Sex: Female
  Weight: 90.8 kg

DRUGS (10)
  1. HUMIRA [Suspect]
     Indication: RHEUMATOID ARTHRITIS
     Dates: start: 20030101, end: 20081201
  2. HUMIRA [Suspect]
     Indication: PSORIATIC ARTHROPATHY
     Dates: start: 20090501, end: 20090801
  3. HUMIRA [Suspect]
     Dates: start: 20090801
  4. HUMIRA [Suspect]
     Indication: RHEUMATOID ARTHRITIS
     Dates: start: 20090828, end: 20090828
  5. HUMIRA [Suspect]
     Indication: PSORIATIC ARTHROPATHY
  6. ARAVA [Concomitant]
     Indication: RHEUMATOID ARTHRITIS
  7. PREDNISONE [Concomitant]
     Indication: RHEUMATOID ARTHRITIS
  8. VERAPAMIL [Concomitant]
     Indication: HYPERTENSION
  9. ZANTAC [Concomitant]
     Indication: GASTROOESOPHAGEAL REFLUX DISEASE
  10. PLAQUENIL [Concomitant]
     Indication: RHEUMATOID ARTHRITIS

REACTIONS (7)
  - ARTHRITIS [None]
  - DRUG DOSE OMISSION [None]
  - FATIGUE [None]
  - INTERVERTEBRAL DISC PROTRUSION [None]
  - POST PROCEDURAL HAEMATOMA [None]
  - PROCEDURAL PAIN [None]
  - SLEEP APNOEA SYNDROME [None]
